FAERS Safety Report 8256012-3 (Version None)
Quarter: 2012Q1

REPORT INFORMATION
  Report Type: 
  Country: None (occurrence: None)
  Receive Date: 20120329
  Receipt Date: 20120319
  Transmission Date: 20120608
  Serious: Yes (Hospitalization)
  Sender: FDA-Public Use
  Company Number: BR-007825

PATIENT
  Age: 11 Year
  Sex: Male

DRUGS (2)
  1. PHENOBARBITAL TAB [Concomitant]
  2. MINIRIN [Suspect]
     Indication: DIABETES INSIPIDUS
     Dosage: 0.1 MG BID ORAL, 0.2 MG QD ORAL
     Route: 048
     Dates: start: 20010101

REACTIONS (6)
  - HYPOTENSION [None]
  - HYPONATRAEMIA [None]
  - DYSPNOEA [None]
  - INCORRECT DOSE ADMINISTERED [None]
  - CONVULSION [None]
  - ECONOMIC PROBLEM [None]
